FAERS Safety Report 18858559 (Version 1)
Quarter: 2021Q1

REPORT INFORMATION
  Report Type: Spontaneous
  Country: US (occurrence: US)
  Receive Date: 20210208
  Receipt Date: 20210208
  Transmission Date: 20210420
  Serious: No
  Sender: FDA-Public Use
  Company Number: US-SA-2021SA038521

PATIENT
  Age: 63 Year
  Sex: Female

DRUGS (17)
  1. PRISTIQ EXTENDED?RELEASE [Concomitant]
     Active Substance: DESVENLAFAXINE SUCCINATE
  2. VITAMIN D3 [Concomitant]
     Active Substance: CHOLECALCIFEROL
  3. VITAMIN C [Concomitant]
     Active Substance: ASCORBIC ACID
  4. FENOFIBRATE. [Concomitant]
     Active Substance: FENOFIBRATE
  5. MELOXICAM. [Concomitant]
     Active Substance: MELOXICAM
  6. ASPIRIN [ACETYLSALICYLIC ACID] [Concomitant]
     Active Substance: ASPIRIN
  7. TRAZODONE HYDROCHLORIDE. [Concomitant]
     Active Substance: TRAZODONE HYDROCHLORIDE
  8. LISINOPRIL. [Concomitant]
     Active Substance: LISINOPRIL
  9. ATORVASTATIN CALCIUM. [Concomitant]
     Active Substance: ATORVASTATIN CALCIUM
  10. ESTRADIOL. [Concomitant]
     Active Substance: ESTRADIOL
  11. MAGNESIUM [Concomitant]
     Active Substance: MAGNESIUM
     Dosage: 250 MG
  12. DUPIXENT [Suspect]
     Active Substance: DUPILUMAB
     Indication: DERMATITIS ATOPIC
     Dosage: 300 MG, QOW
     Route: 058
     Dates: start: 202010
  13. CENTRUM SILVER [ASCORBIC ACID;CALCIUM;MINERALS NOS;RETINOL;TOCOPHERYL [Concomitant]
  14. MORPHINE SULFATE. [Concomitant]
     Active Substance: MORPHINE SULFATE
  15. SOMA [Concomitant]
     Active Substance: CARISOPRODOL
  16. AMBIEN [Concomitant]
     Active Substance: ZOLPIDEM TARTRATE
  17. IRON [Concomitant]
     Active Substance: IRON

REACTIONS (1)
  - Muscular weakness [Unknown]
